FAERS Safety Report 6863664-9 (Version None)
Quarter: 2010Q3

REPORT INFORMATION
  Report Type: 
  Country: None (occurrence: None)
  Receive Date: 20100721
  Receipt Date: 20080306
  Transmission Date: 20110219
  Serious: No
  Sender: FDA-Public Use
  Company Number: US-PFIZER INC-2008022698

PATIENT
  Sex: Male
  Weight: 90.9 kg

DRUGS (3)
  1. CHANTIX [Suspect]
     Indication: SMOKING CESSATION THERAPY
     Route: 048
     Dates: start: 20071001, end: 20071101
  2. VITAMINS [Concomitant]
  3. BENADRYL [Concomitant]

REACTIONS (2)
  - ABDOMINAL PAIN [None]
  - DYSGEUSIA [None]
